FAERS Safety Report 18207732 (Version 1)
Quarter: 2020Q3

REPORT INFORMATION
  Report Type: Spontaneous
  Country: US (occurrence: US)
  Receive Date: 20200828
  Receipt Date: 20200828
  Transmission Date: 20201103
  Serious: No
  Sender: FDA-Public Use
  Company Number: US-PFIZER INC-2020334224

PATIENT
  Age: 54 Year
  Sex: Female
  Weight: 56.24 kg

DRUGS (1)
  1. IBRANCE [Suspect]
     Active Substance: PALBOCICLIB
     Indication: BREAST CANCER FEMALE
     Dosage: 100 MG, DAILY (TAKE 1 TABLET DAILY AS DIRECTED)
     Route: 048
     Dates: start: 20200614

REACTIONS (3)
  - White blood cell count decreased [Unknown]
  - Alopecia [Unknown]
  - Increased tendency to bruise [Unknown]
